FAERS Safety Report 7816254-5 (Version None)
Quarter: 2011Q4

REPORT INFORMATION
  Report Type: 
  Country: None (occurrence: None)
  Receive Date: 20111016
  Receipt Date: 20111007
  Transmission Date: 20120403
  Serious: Yes (Death)
  Sender: FDA-Public Use
  Company Number: US-CELGENEUS-163-21880-11090731

PATIENT
  Sex: Male

DRUGS (13)
  1. CYANOCOBALAMIN [Concomitant]
     Route: 065
  2. ASPIRIN [Concomitant]
     Route: 065
  3. HYDROCHLOROTHIAZIDE [Concomitant]
     Route: 065
  4. REVLIMID [Suspect]
     Indication: MULTIPLE MYELOMA
     Dosage: 10 MILLIGRAM
     Route: 048
     Dates: start: 20060101, end: 20110603
  5. PERCOCET [Concomitant]
     Route: 065
  6. AVAPRO [Concomitant]
     Route: 065
  7. TEKTURNA [Concomitant]
     Route: 065
  8. PROCRIT [Concomitant]
     Route: 065
  9. CLONIDINE [Concomitant]
     Route: 065
  10. NORVASC [Concomitant]
     Route: 065
  11. SIMVASTATIN [Concomitant]
     Route: 065
  12. PREVACID [Concomitant]
     Route: 065
  13. CELEXA [Concomitant]
     Route: 065

REACTIONS (1)
  - ROAD TRAFFIC ACCIDENT [None]
